FAERS Safety Report 4317874-5 (Version None)
Quarter: 2004Q1

REPORT INFORMATION
  Report Type: 
  Country: None (occurrence: None)
  Receive Date: 20040312
  Receipt Date: 20040226
  Transmission Date: 20041129
  Serious: Yes (Death)
  Sender: FDA-Public Use
  Company Number: TOS-000611

PATIENT
  Age: 68 Year
  Sex: Male
  Weight: 134.7 kg

DRUGS (11)
  1. TOSITUMOMAB, IODINE I 131 TOSITUMOMAB (TOSITUMOMAB, IODINE I 131 TOSIT [Suspect]
     Indication: NON-HODGKIN'S LYMPHOMA
     Dosage: SEE IMAGE
     Route: 042
     Dates: start: 19930616, end: 19930616
  2. TOSITUMOMAB, IODINE I 131 TOSITUMOMAB (TOSITUMOMAB, IODINE I 131 TOSIT [Suspect]
     Indication: NON-HODGKIN'S LYMPHOMA
     Dosage: SEE IMAGE
     Route: 042
     Dates: start: 19930623, end: 19930623
  3. TOSITUMOMAB, IODINE I 131 TOSITUMOMAB (TOSITUMOMAB, IODINE I 131 TOSIT [Suspect]
     Indication: NON-HODGKIN'S LYMPHOMA
     Dosage: SEE IMAGE
     Route: 042
     Dates: start: 19930630, end: 19930630
  4. TOSITUMOMAB, IODINE I 131 TOSITUMOMAB (TOSITUMOMAB, IODINE I 131 TOSIT [Suspect]
     Indication: NON-HODGKIN'S LYMPHOMA
     Dosage: SEE IMAGE
     Route: 042
     Dates: start: 19951110, end: 19951110
  5. TOSITUMOMAB, IODINE I 131 TOSITUMOMAB (TOSITUMOMAB, IODINE I 131 TOSIT [Suspect]
     Indication: NON-HODGKIN'S LYMPHOMA
     Dosage: SEE IMAGE
     Route: 042
     Dates: start: 19951117, end: 19951117
  6. TOSITUMOMAB, IODINE I 131 TOSITUMOMAB (TOSITUMOMAB, IODINE I 131 TOSIT [Suspect]
  7. TOSITUMOMAB, IODINE I 131 TOSITUMOMAB (TOSITUMOMAB, IODINE I 131 TOSIT [Suspect]
  8. TOSITUMOMAB, IODINE I 131 TOSITUMOMAB (TOSITUMOMAB, IODINE I 131 TOSIT [Suspect]
  9. TOSITUMOMAB, IODINE I 131 TOSITUMOMAB (TOSITUMOMAB, IODINE I 131 TOSIT [Suspect]
  10. TOSITUMOMAB, IODINE I 131 TOSITUMOMAB (TOSITUMOMAB, IODINE I 131 TOSIT [Suspect]
  11. TOSITUMOMAB, IODINE I 131 TOSITUMOMAB (TOSITUMOMAB, IODINE I 131 TOSIT [Suspect]

REACTIONS (54)
  - ABDOMINAL PAIN [None]
  - ACIDOSIS [None]
  - ANOREXIA [None]
  - ARTHRALGIA [None]
  - ARTHRITIS BACTERIAL [None]
  - ATELECTASIS [None]
  - BLOOD ALBUMIN DECREASED [None]
  - BLOOD ALKALINE PHOSPHATASE INCREASED [None]
  - BLOOD CALCIUM DECREASED [None]
  - BLOOD POTASSIUM DECREASED [None]
  - BODY TEMPERATURE DECREASED [None]
  - BONE MARROW DEPRESSION [None]
  - CARDIAC FAILURE CONGESTIVE [None]
  - CHRONIC HEPATITIS [None]
  - DECUBITUS ULCER [None]
  - DEPRESSED LEVEL OF CONSCIOUSNESS [None]
  - DRY MOUTH [None]
  - EXCORIATION [None]
  - FALL [None]
  - FATIGUE [None]
  - GALLOP RHYTHM PRESENT [None]
  - GASTROINTESTINAL ULCER HAEMORRHAGE [None]
  - GENERAL PHYSICAL HEALTH DETERIORATION [None]
  - HEAD INJURY [None]
  - HEPATIC MASS [None]
  - HEPATIC NEOPLASM [None]
  - HYDRONEPHROSIS [None]
  - HYDROURETER [None]
  - LYMPHADENITIS [None]
  - LYMPHADENOPATHY [None]
  - MALAISE [None]
  - MARKEDLY REDUCED DIETARY INTAKE [None]
  - MENTAL STATUS CHANGES [None]
  - NON-HODGKIN'S LYMPHOMA RECURRENT [None]
  - PANCREATITIS [None]
  - PANCYTOPENIA [None]
  - PITTING OEDEMA [None]
  - PLEURAL EFFUSION [None]
  - PNEUMONIA [None]
  - PROCEDURAL HYPOTENSION [None]
  - RALES [None]
  - REFUSAL OF TREATMENT BY PATIENT [None]
  - RENAL FAILURE CHRONIC [None]
  - RESPIRATORY RATE INCREASED [None]
  - SCROTAL OEDEMA [None]
  - SEPTIC SHOCK [None]
  - SPLENIC LESION [None]
  - STAPHYLOCOCCAL SEPSIS [None]
  - SUBARACHNOID HAEMORRHAGE [None]
  - SYNCOPE [None]
  - SYNOVIAL FLUID CRYSTAL PRESENT [None]
  - THYROXINE ABNORMAL [None]
  - TRIPLE VESSEL BYPASS GRAFT [None]
  - URINARY TRACT INFECTION PSEUDOMONAL [None]
